FAERS Safety Report 15059835 (Version 1)
Quarter: 2018Q2

REPORT INFORMATION
  Report Type: Spontaneous
  Country: US (occurrence: US)
  Receive Date: 20180625
  Receipt Date: 20180625
  Transmission Date: 20180711
  Serious: No
  Sender: FDA-Public Use
  Company Number: US-SA-2018SA158666

PATIENT
  Age: 80 Year
  Sex: Female

DRUGS (22)
  1. HUMALOG [Concomitant]
     Active Substance: INSULIN LISPRO
  2. FENOFIBRATE. [Concomitant]
     Active Substance: FENOFIBRATE
  3. HYDROCHLOROTH [Concomitant]
     Active Substance: HYDROCHLOROTHIAZIDE
  4. LANTUS [Concomitant]
     Active Substance: INSULIN GLARGINE
  5. LEVOTHYROXINE. [Concomitant]
     Active Substance: LEVOTHYROXINE
  6. FAMOTIDINE. [Concomitant]
     Active Substance: FAMOTIDINE
  7. MEMANTINE HCL [Concomitant]
     Active Substance: MEMANTINE
  8. CIPRO [CIPROFLOXACIN HYDROCHLORIDE] [Concomitant]
  9. AMLODIPINE [Concomitant]
     Active Substance: AMLODIPINE BESYLATE
  10. CARVEDILOL. [Concomitant]
     Active Substance: CARVEDILOL
  11. VENTOLIN HFA [Concomitant]
     Active Substance: ALBUTEROL SULFATE
  12. CALCIUM [Concomitant]
     Active Substance: CALCIUM
  13. NYSTATIN. [Concomitant]
     Active Substance: NYSTATIN
  14. PRALUENT [Suspect]
     Active Substance: ALIROCUMAB
     Indication: HYPERLIPIDAEMIA
     Dosage: 150 MG, QOW
     Route: 058
     Dates: start: 20180608
  15. CEPHALEXINE [Concomitant]
     Active Substance: CEPHALEXIN
  16. NOVOLOG [Concomitant]
     Active Substance: INSULIN ASPART
  17. VITAMIN D3 [Concomitant]
     Active Substance: CHOLECALCIFEROL
  18. PREMARIN [Concomitant]
     Active Substance: ESTROGENS, CONJUGATED
  19. WARFARIN SODIUM. [Concomitant]
     Active Substance: WARFARIN SODIUM
  20. LORAZEPAM. [Concomitant]
     Active Substance: LORAZEPAM
  21. SOTALOL HCL [Concomitant]
     Active Substance: SOTALOL
  22. VALSARTAN. [Concomitant]
     Active Substance: VALSARTAN

REACTIONS (6)
  - Musculoskeletal stiffness [Not Recovered/Not Resolved]
  - Pain [Not Recovered/Not Resolved]
  - Joint swelling [Not Recovered/Not Resolved]
  - Rhinorrhoea [Not Recovered/Not Resolved]
  - Arthralgia [Not Recovered/Not Resolved]
  - Muscle spasms [Not Recovered/Not Resolved]
